FAERS Safety Report 5249249-9 (Version None)
Quarter: 2007Q1

REPORT INFORMATION
  Report Type: 
  Country: None (occurrence: None)
  Receive Date: 20070223
  Receipt Date: 20070206
  Transmission Date: 20070707
  Serious: Yes (Death, Other)
  Sender: FDA-Public Use
  Company Number: GXKR2007JP01116

PATIENT
  Age: 67 Year
  Sex: Female

DRUGS (2)
  1. PREDNISOLONE [Suspect]
     Indication: DERMATOMYOSITIS
     Dosage: 30 MG, QD
  2. CYCLOPHOSPHAMIDE [Suspect]
     Indication: DERMATOMYOSITIS
     Dosage: 50 MG, QD

REACTIONS (7)
  - BLOOD LACTATE DEHYDROGENASE INCREASED [None]
  - CELL MARKER INCREASED [None]
  - CONDITION AGGRAVATED [None]
  - CYTOMEGALOVIRUS INFECTION [None]
  - DERMATOMYOSITIS [None]
  - DYSPNOEA [None]
  - INTERSTITIAL LUNG DISEASE [None]
